FAERS Safety Report 17533547 (Version 1)
Quarter: 2020Q1

REPORT INFORMATION
  Report Type: Spontaneous
  Country: US (occurrence: US)
  Receive Date: 20200312
  Receipt Date: 20200312
  Transmission Date: 20200409
  Serious: Yes (Other)
  Sender: FDA-Public Use
  Company Number: None

PATIENT
  Age: 43 Year
  Sex: Female
  Weight: 60.75 kg

DRUGS (9)
  1. AIMOVIG [Suspect]
     Active Substance: ERENUMAB-AOOE
     Indication: MIGRAINE
     Dosage: ?          QUANTITY:2 INJECTION(S);OTHER FREQUENCY:1?MONTHLY;?
     Route: 058
     Dates: start: 20200311, end: 20200311
  2. TRAMADOL. [Concomitant]
     Active Substance: TRAMADOL
  3. ADVIL MIGRAINE [Concomitant]
     Active Substance: IBUPROFEN
  4. FIORCET [Concomitant]
  5. BUPROPION. [Concomitant]
     Active Substance: BUPROPION
  6. LORATADINE. [Concomitant]
     Active Substance: LORATADINE
  7. VITAMIN D [Concomitant]
     Active Substance: VITAMIN D NOS
  8. AIMOVIG [Concomitant]
     Active Substance: ERENUMAB-AOOE
  9. IBUPROFEN 800 [Concomitant]
     Active Substance: IBUPROFEN

REACTIONS (5)
  - Erythema [None]
  - Cheilitis [None]
  - Rash [None]
  - Pruritus [None]
  - Inflammation [None]

NARRATIVE: CASE EVENT DATE: 20200311
